FAERS Safety Report 5574989-1 (Version None)
Quarter: 2007Q4

REPORT INFORMATION
  Report Type: 
  Country: None (occurrence: None)
  Receive Date: 20071227
  Receipt Date: 20071218
  Transmission Date: 20080405
  Serious: Yes (Hospitalization)
  Sender: FDA-Public Use
  Company Number: B0500895A

PATIENT
  Age: 18 Year
  Sex: Female

DRUGS (7)
  1. VENTOLIN [Suspect]
     Indication: ASTHMA
     Route: 055
  2. ATROVENT [Suspect]
     Indication: ASTHMA
     Route: 055
  3. BRICANYL [Suspect]
     Indication: ASTHMA
     Route: 055
  4. PULMICORT [Suspect]
     Indication: ASTHMA
     Route: 055
  5. SOLUPRED [Concomitant]
  6. CELESTONE [Concomitant]
     Route: 042
  7. EPINEPHRIN [Concomitant]

REACTIONS (15)
  - AMNESIA [None]
  - ANGIOEDEMA [None]
  - DRUG HYPERSENSITIVITY [None]
  - DYSAESTHESIA [None]
  - DYSKINESIA [None]
  - DYSPNOEA [None]
  - LARYNGEAL OEDEMA [None]
  - LIP OEDEMA [None]
  - LOSS OF CONSCIOUSNESS [None]
  - MALAISE [None]
  - OVERDOSE [None]
  - PRURITUS [None]
  - RALES [None]
  - TONGUE OEDEMA [None]
  - URTICARIA CHRONIC [None]
